FAERS Safety Report 5489621-5 (Version None)
Quarter: 2007Q4

REPORT INFORMATION
  Report Type: 
  Country: None (occurrence: None)
  Receive Date: 20071009
  Receipt Date: 20070706
  Transmission Date: 20080405
  Serious: Yes (Other)
  Sender: FDA-Public Use
  Company Number: US-JNJFOC-0070701917

PATIENT
  Age: 60 Year
  Sex: Female
  Weight: 58.9676 kg

DRUGS (6)
  1. ULTRAM ER [Suspect]
     Indication: BACK PAIN
     Dosage: 300 MG,  1 IN 1 DAY, ORAL; 400 MG, 1 IN 1 DAY, ORAL
     Route: 048
     Dates: start: 20070301, end: 20070401
  2. ULTRAM ER [Suspect]
     Indication: BACK PAIN
     Dosage: 300 MG,  1 IN 1 DAY, ORAL; 400 MG, 1 IN 1 DAY, ORAL
     Route: 048
     Dates: start: 20070401
  3. LORTAB (VICODIN) UNSPECIFIED [Concomitant]
  4. LOTREL (LOTREL) UNSPECIFIED [Concomitant]
  5. PROZAC [Concomitant]
  6. TRIAZOLAM (TRIAZOLAM) UNSPECIFIED [Concomitant]

REACTIONS (7)
  - CRYING [None]
  - HALLUCINATION, AUDITORY [None]
  - HEADACHE [None]
  - HYPERTENSION [None]
  - MEDICATION RESIDUE [None]
  - MENTAL DISORDER [None]
  - THERAPEUTIC RESPONSE DECREASED [None]
